FAERS Safety Report 7813010-9 (Version None)
Quarter: 2011Q4

REPORT INFORMATION
  Report Type: 
  Country: None (occurrence: None)
  Receive Date: 20111013
  Receipt Date: 20111005
  Transmission Date: 20120403
  Serious: Yes (Life-Threatening, Hospitalization, Other)
  Sender: FDA-Public Use
  Company Number: JP-ROCHE-780606

PATIENT
  Age: 76 Year
  Sex: Female

DRUGS (21)
  1. LASIX [Concomitant]
     Dosage: FORM: ORAL FORMULATION (NOS)
     Route: 048
  2. LASIX [Concomitant]
     Route: 048
     Dates: start: 20090206, end: 20090402
  3. CANDESARTAN CILEXETIL [Concomitant]
     Route: 048
     Dates: start: 20090814, end: 20091210
  4. PREDNISOLONE [Concomitant]
     Route: 048
  5. ALENDRONATE SODIUM [Concomitant]
     Dosage: DRUG: BONALON 35 MG
     Route: 048
     Dates: start: 20090206, end: 20091210
  6. URSO 250 [Concomitant]
     Dosage: FORM: PERORAL AGENT
     Route: 048
     Dates: start: 20090206, end: 20091210
  7. ACTEMRA [Suspect]
     Indication: RHEUMATOID ARTHRITIS
     Route: 041
     Dates: start: 20081211, end: 20090108
  8. CYTOTEC [Concomitant]
     Route: 048
  9. CELECOXIB [Concomitant]
     Route: 048
     Dates: start: 20090206, end: 20091210
  10. TORSEMIDE [Concomitant]
     Route: 048
     Dates: start: 20090424, end: 20090827
  11. LOXOPROFEN SODIUM [Suspect]
     Route: 048
  12. FERROUS CITRATE [Concomitant]
     Dosage: FORM: PERORAL AGENT
     Route: 048
     Dates: start: 20090206, end: 20091210
  13. CYTOTEC [Concomitant]
     Route: 048
     Dates: start: 20090206, end: 20090315
  14. LASIX [Concomitant]
     Route: 048
  15. MICARDIS [Concomitant]
     Route: 048
     Dates: start: 20090206, end: 20090424
  16. ASPIRIN [Suspect]
     Indication: RHEUMATOID ARTHRITIS
     Route: 048
  17. MICARDIS [Concomitant]
     Route: 048
  18. URSO 250 [Concomitant]
     Dosage: DOSE FORM;ORAL FORMULATION
     Route: 048
  19. FERROUS CITRATE [Concomitant]
     Dosage: FORM: ORAL FORMULATION (NOS)
     Route: 048
  20. LOXOPROFEN SODIUM [Suspect]
     Indication: RHEUMATOID ARTHRITIS
     Dosage: FORM: ORAL FORMULATION (NOS)
     Route: 048
  21. MINOCYCLINE HCL [Concomitant]
     Dosage: FORM:PERORAL AGENT
     Route: 048
     Dates: start: 20090417, end: 20091210

REACTIONS (6)
  - GENERAL PHYSICAL HEALTH DETERIORATION [None]
  - GENERALISED OEDEMA [None]
  - GASTROINTESTINAL STROMAL TUMOUR [None]
  - GASTRIC ULCER [None]
  - BLADDER CANCER [None]
  - ARTHRITIS BACTERIAL [None]
